FAERS Safety Report 20582445 (Version 1)
Quarter: 2022Q1

REPORT INFORMATION
  Report Type: Spontaneous
  Country: US (occurrence: None)
  Receive Date: 20220310
  Receipt Date: 20220310
  Transmission Date: 20220423
  Serious: No
  Sender: FDA-Public Use
  Company Number: None

PATIENT
  Age: 64 Year
  Sex: Male

DRUGS (1)
  1. POMALYST [Suspect]
     Active Substance: POMALIDOMIDE
     Indication: Plasma cell myeloma
     Dosage: FREQUENCY : DAILY;?
     Route: 048
     Dates: start: 20220204

REACTIONS (5)
  - Peripheral swelling [None]
  - Pain in extremity [None]
  - Erythema [None]
  - Skin warm [None]
  - Deep vein thrombosis [None]

NARRATIVE: CASE EVENT DATE: 20220306
